FAERS Safety Report 9802471 (Version 3)
Quarter: 2014Q1

REPORT INFORMATION
  Report Type: Spontaneous
  Country: HU (occurrence: HU)
  Receive Date: 20140107
  Receipt Date: 20140217
  Transmission Date: 20141002
  Serious: Yes (Death, Hospitalization, Other)
  Sender: FDA-Public Use
  Company Number: US-ASTRAZENECA-2014SE00647

PATIENT
  Age: 6 Month
  Sex: Male

DRUGS (1)
  1. SYNAGIS [Suspect]
     Indication: PRODUCT USED FOR UNKNOWN INDICATION
     Dosage: SYNAGIS DOSE WAS GIVEN BASED ON BODY WEIGHT, MONTHLY
     Route: 030
     Dates: start: 20131127

REACTIONS (9)
  - Death [Fatal]
  - Pneumonia [Fatal]
  - Dyspnoea [Not Recovered/Not Resolved]
  - Paresis [Not Recovered/Not Resolved]
  - Hepatomegaly [Recovering/Resolving]
  - Cardiomegaly [Recovering/Resolving]
  - Cyanosis [Not Recovered/Not Resolved]
  - Drug intolerance [Unknown]
  - Respiratory syncytial virus infection [Unknown]
